FAERS Safety Report 17763688 (Version 2)
Quarter: 2020Q3

REPORT INFORMATION
  Report Type: Spontaneous
  Country: DE (occurrence: DE)
  Receive Date: 20200510
  Receipt Date: 20200715
  Transmission Date: 20201102
  Serious: Yes (Hospitalization, Other)
  Sender: FDA-Public Use
  Company Number: DE-SUN PHARMACEUTICAL INDUSTRIES LTD-2020RR-246463

PATIENT
  Age: 64 Year
  Sex: Male

DRUGS (6)
  1. CLOPIDOGREL [Suspect]
     Active Substance: CLOPIDOGREL BISULFATE
     Indication: PRODUCT USED FOR UNKNOWN INDICATION
     Dosage: 75 MG, 0?1?0?0
     Route: 065
  2. METOPROLOL. [Concomitant]
     Active Substance: METOPROLOL
     Indication: PRODUCT USED FOR UNKNOWN INDICATION
     Dosage: 47.5 MG, 1?0?1?0
     Route: 065
  3. HEPAXANE 6,000 IU (60 MG)/0.6 ML INJEKTIONSLOSUNG [Suspect]
     Active Substance: ENOXAPARIN SODIUM
     Indication: PRODUCT USED FOR UNKNOWN INDICATION
     Dosage: 60 MG, 1?0?1?0
     Route: 058
  4. PANTOPRAZOL [Concomitant]
     Active Substance: PANTOPRAZOLE SODIUM
     Indication: PRODUCT USED FOR UNKNOWN INDICATION
     Dosage: 40 MG, 1?0?0?0
     Route: 065
  5. ATORVASTATIN [Concomitant]
     Active Substance: ATORVASTATIN
     Indication: PRODUCT USED FOR UNKNOWN INDICATION
     Dosage: 20 MG, 0?0?1?0
     Route: 065
  6. CANDESARTAN. [Concomitant]
     Active Substance: CANDESARTAN
     Indication: PRODUCT USED FOR UNKNOWN INDICATION
     Dosage: 8 MG, 1?0?0?0
     Route: 065

REACTIONS (3)
  - Haematochezia [Unknown]
  - Pallor [Unknown]
  - Anaemia [Unknown]
